FAERS Safety Report 18940541 (Version 1)
Quarter: 2021Q1

REPORT INFORMATION
  Report Type: Spontaneous
  Country: US (occurrence: US)
  Receive Date: 20210225
  Receipt Date: 20210225
  Transmission Date: 20210420
  Serious: Yes (Other)
  Sender: FDA-Public Use
  Company Number: US-AMGEN-USASP2021026519

PATIENT
  Sex: Female

DRUGS (1)
  1. PROLIA [Suspect]
     Active Substance: DENOSUMAB
     Indication: PRODUCT USED FOR UNKNOWN INDICATION
     Dosage: UNK
     Route: 065

REACTIONS (8)
  - Diabetes mellitus [Unknown]
  - Renal disorder [Unknown]
  - Fibromyalgia [Unknown]
  - Fall [Unknown]
  - Intervertebral disc degeneration [Unknown]
  - Joint injury [Not Recovered/Not Resolved]
  - Vertigo [Unknown]
  - Arthritis [Unknown]
